FAERS Safety Report 8169535-2 (Version None)
Quarter: 2012Q1

REPORT INFORMATION
  Report Type: 
  Country: None (occurrence: None)
  Receive Date: 20120228
  Receipt Date: 20120220
  Transmission Date: 20120608
  Serious: Yes (Death)
  Sender: FDA-Public Use
  Company Number: US-UCBSA-050686

PATIENT
  Age: 55 Year
  Sex: Female
  Weight: 92.98 kg

DRUGS (4)
  1. CELEBREX [Concomitant]
     Indication: RHEUMATOID ARTHRITIS
     Route: 048
  2. PREDNISONE [Concomitant]
     Indication: RHEUMATOID ARTHRITIS
     Route: 048
     Dates: start: 20090101
  3. METHOTREXATE [Concomitant]
     Indication: RHEUMATOID ARTHRITIS
     Route: 048
     Dates: start: 20070702, end: 20110928
  4. CIMZIA [Suspect]
     Indication: RHEUMATOID ARTHRITIS
     Route: 058
     Dates: start: 20100714, end: 20110928

REACTIONS (1)
  - INFLUENZA [None]
